FAERS Safety Report 9361112 (Version 2)
Quarter: 2013Q3

REPORT INFORMATION
  Report Type: Spontaneous
  Country: US (occurrence: None)
  Receive Date: 20130618
  Receipt Date: 20130710
  Transmission Date: 20140515
  Serious: Yes (Hospitalization)
  Sender: FDA-Public Use
  Company Number: 2013-0959

PATIENT
  Age: 68 Year
  Sex: Female
  Weight: 47.6 kg

DRUGS (2)
  1. CARFILZOMIB [Suspect]
     Indication: PLASMA CELL MYELOMA
     Dosage: 20 MG, DAYS, 1, 2, 8, 9, 15, 16, INTRAVENOUS
     Route: 042
     Dates: start: 20130530
  2. POMALIDOMIDE (POMALIDOMIDE) (POMALIDOMIDE) [Concomitant]

REACTIONS (10)
  - Dizziness [None]
  - Asthenia [None]
  - Hypophagia [None]
  - Syncope [None]
  - Cough [None]
  - Rhinorrhoea [None]
  - Malaise [None]
  - Nasopharyngitis [None]
  - Headache [None]
  - Dehydration [None]
